FAERS Safety Report 9231725 (Version 9)
Quarter: 2020Q4

REPORT INFORMATION
  Report Type: Other
  Country: CA (occurrence: CA)
  Receive Date: 20130415
  Receipt Date: 20201113
  Transmission Date: 20210114
  Serious: Yes (Other)
  Sender: FDA-Public Use
  Company Number: CA-ROCHE-1146524

PATIENT
  Age: 57 Year
  Sex: Female
  Weight: 47.6 kg

DRUGS (18)
  1. RITUXAN [Suspect]
     Active Substance: RITUXIMAB
     Indication: RHEUMATOID ARTHRITIS
     Dosage: ON DAY 1 AND 15?MOST RECENT DOSE ON 28/MAY/2014?MOST RECENT DOSE ON 09/DEC/2014.
     Route: 042
     Dates: start: 20100721, end: 20200617
  2. ZOPICLONE [Concomitant]
     Active Substance: ZOPICLONE
  3. CYCLOBENZAPRINE. [Concomitant]
     Active Substance: CYCLOBENZAPRINE
     Indication: MUSCLE SPASMS
  4. ACETAMINOPHEN. [Concomitant]
     Active Substance: ACETAMINOPHEN
     Indication: PREMEDICATION
     Route: 048
     Dates: start: 20100721
  5. COPPER [Concomitant]
     Active Substance: COPPER
  6. LEVOTHYROXINE SODIUM. [Concomitant]
     Active Substance: LEVOTHYROXINE SODIUM
  7. SELENIUM [Concomitant]
     Active Substance: SELENIUM
  8. METHYLPREDNISOLONE. [Concomitant]
     Active Substance: METHYLPREDNISOLONE
     Indication: PREMEDICATION
     Route: 042
     Dates: start: 20100721
  9. ZOLOFT [Concomitant]
     Active Substance: SERTRALINE HYDROCHLORIDE
  10. MIRTAZAPINE. [Concomitant]
     Active Substance: MIRTAZAPINE
  11. OLESTYR [Concomitant]
     Active Substance: CHOLESTYRAMINE
  12. HYDROXYCHLOROQUINE [Concomitant]
     Active Substance: HYDROXYCHLOROQUINE
  13. TRAMACET [Concomitant]
     Active Substance: ACETAMINOPHEN\TRAMADOL
     Indication: PAIN
  14. VITAMIN B6 [Concomitant]
     Active Substance: PYRIDOXINE HYDROCHLORIDE
  15. FISH OIL [Concomitant]
     Active Substance: FISH OIL
  16. DIPHENHYDRAMINE HCL [Concomitant]
     Active Substance: DIPHENHYDRAMINE HYDROCHLORIDE
     Indication: PREMEDICATION
     Route: 048
     Dates: start: 20100721
  17. PREDNISONE. [Concomitant]
     Active Substance: PREDNISONE
  18. FLAXSEED [Concomitant]
     Active Substance: FLAX SEED

REACTIONS (14)
  - Arthropathy [Not Recovered/Not Resolved]
  - Road traffic accident [Unknown]
  - Foot deformity [Not Recovered/Not Resolved]
  - Stress [Unknown]
  - Headache [Unknown]
  - Dizziness [Unknown]
  - Extremity necrosis [Recovered/Resolved]
  - Bile acid malabsorption [Unknown]
  - Pain [Not Recovered/Not Resolved]
  - Poor peripheral circulation [Recovered/Resolved]
  - Sciatica [Not Recovered/Not Resolved]
  - Ear pain [Not Recovered/Not Resolved]
  - Oropharyngeal pain [Not Recovered/Not Resolved]
  - Insomnia [Unknown]

NARRATIVE: CASE EVENT DATE: 20121010
